FAERS Safety Report 7019547-7 (Version None)
Quarter: 2010Q3

REPORT INFORMATION
  Report Type: 
  Country: None (occurrence: None)
  Receive Date: 20100923
  Receipt Date: 20100917
  Transmission Date: 20110219
  Serious: Yes (Death, Other)
  Sender: FDA-Public Use
  Company Number: 2010US003841

PATIENT
  Age: 41 Year
  Sex: Female
  Weight: 52 kg

DRUGS (1)
  1. PROGRAF [Suspect]
     Indication: LUNG TRANSPLANT
     Dosage: 2 MG, BID, ORAL
     Route: 048
     Dates: start: 20080826, end: 20100912

REACTIONS (2)
  - LUNG TRANSPLANT REJECTION [None]
  - PULMONARY FUNCTION TEST DECREASED [None]
